FAERS Safety Report 9414173 (Version 2)
Quarter: 2013Q3

REPORT INFORMATION
  Report Type: Spontaneous
  Country: DE (occurrence: None)
  Receive Date: 20130717
  Receipt Date: 20130910
  Transmission Date: 20140515
  Serious: Yes (Other)
  Sender: FDA-Public Use
  Company Number: AUR-APL-2013-05889

PATIENT
  Sex: Male
  Weight: 66 kg

DRUGS (1)
  1. RISPERIDONE (RISPERIDONE) [Suspect]
     Indication: AUTISM
     Dosage: 0.25 MG (0.25 MG, 1 IN 1 D), UNKNOWN
     Dates: start: 2010

REACTIONS (1)
  - Growth retardation [None]
